FAERS Safety Report 8527724 (Version 2)
Quarter: 2012Q4

REPORT INFORMATION
  Report Type: 
  Country: US (occurrence: US)
  Receive Date: 20120901
  Receipt Date: 20120913
  Transmission Date: 20130627
  Serious: Yes (Life-Threatening, Hospitalization, Other)
  Sender: FDA-Public Use
  Company Number: US-ACTELION-A-NJ2011-64470

PATIENT
  Age: 16 Year
  Sex: Female

DRUGS (1)
  1. TRACLEER [Suspect]
     Indication: PULMONARY ARTERIAL HYPERTENSION
     Dosage: UNK
     Route: 048
     Dates: start: 20100121

REACTIONS (4)
  - Heart and lung transplant [Recovered/Resolved]
  - Right ventricular failure [Recovered/Resolved]
  - Condition aggravated [Recovered/Resolved]
  - Life support [Recovered/Resolved]
